FAERS Safety Report 24206227 (Version 1)
Quarter: 2024Q3

REPORT INFORMATION
  Report Type: Spontaneous
  Country: US (occurrence: US)
  Receive Date: 20240813
  Receipt Date: 20240813
  Transmission Date: 20241016
  Serious: No
  Sender: MYLAN
  Company Number: US-MYLANLABS-2024M1073322

PATIENT
  Age: 62 Year
  Sex: Male

DRUGS (1)
  1. BREYNA [Suspect]
     Active Substance: BUDESONIDE\FORMOTEROL FUMARATE
     Indication: Chronic obstructive pulmonary disease
     Dosage: 160/9 MICROGRAM, BID (TWO PUFFS, ONE IN THE MORNING ONE AT NIGHT)
     Route: 055

REACTIONS (4)
  - Device delivery system issue [Unknown]
  - Device malfunction [Unknown]
  - Product substitution issue [Unknown]
  - Therapeutic product effect incomplete [Unknown]

NARRATIVE: CASE EVENT DATE: 20240801
